APPROVED DRUG PRODUCT: MS CONTIN
Active Ingredient: MORPHINE SULFATE
Strength: 100MG
Dosage Form/Route: TABLET, EXTENDED RELEASE;ORAL
Application: N019516 | Product #004 | TE Code: AB
Applicant: PURDUE PHARMA LP
Approved: Jan 16, 1990 | RLD: Yes | RS: Yes | Type: RX